FAERS Safety Report 10042727 (Version 3)
Quarter: 2014Q2

REPORT INFORMATION
  Report Type: Spontaneous
  Country: US (occurrence: US)
  Receive Date: 20140327
  Receipt Date: 20140417
  Transmission Date: 20141212
  Serious: Yes (Death, Hospitalization)
  Sender: FDA-Public Use
  Company Number: US-B.I. PHARMACEUTICALS,INC./RIDGEFIELD-2014-BI-13156BP

PATIENT
  Age: 60 Year
  Sex: Female

DRUGS (8)
  1. SPIRIVA [Suspect]
     Indication: CHRONIC OBSTRUCTIVE PULMONARY DISEASE
     Dosage: 18 MCG
     Route: 055
     Dates: start: 20100624, end: 20130718
  2. ALBUTEROL [Concomitant]
     Indication: CHRONIC OBSTRUCTIVE PULMONARY DISEASE
     Route: 055
  3. VENTOLIN [Concomitant]
     Route: 065
  4. ADVAIR [Concomitant]
     Indication: CHRONIC OBSTRUCTIVE PULMONARY DISEASE
     Dosage: DOSE PER APPLICATION: 500/50
     Route: 055
  5. CADUET [Concomitant]
     Indication: HYPERTENSION
     Dosage: DOSE PER APPLICATION: 10/80 MG
     Route: 048
  6. CADUET [Concomitant]
     Indication: LIPIDS
  7. ACCURETIC [Concomitant]
     Indication: HYPERTENSION
     Dosage: DOSE PER APPLICATION: 20/12.5 MG
     Route: 048
  8. CLONIDINE [Concomitant]
     Indication: HYPERTENSION
     Dosage: 0.2 MG
     Route: 048

REACTIONS (4)
  - Pneumonia [Fatal]
  - Staphylococcal sepsis [Fatal]
  - Respiratory failure [Fatal]
  - Pneumothorax [Unknown]
